FAERS Safety Report 8926564 (Version 2)
Quarter: 2012Q4

REPORT INFORMATION
  Report Type: Report from Study
  Country: AU (occurrence: AU)
  Receive Date: 20121127
  Receipt Date: 20121211
  Transmission Date: 20130627
  Serious: Yes (Hospitalization, Other)
  Sender: FDA-Public Use
  Company Number: AU-ROCHE-1159829

PATIENT
  Sex: Female

DRUGS (8)
  1. METHOXY POLYETHYLENE GLYCOL-EPOETIN BETA [Suspect]
     Indication: NEPHROGENIC ANAEMIA
     Route: 058
     Dates: start: 20111223
  2. MIRAXID [Concomitant]
  3. LIPITOR [Concomitant]
     Route: 065
  4. COVERSYL [Concomitant]
     Route: 065
  5. GLIPIZIDE [Concomitant]
     Route: 065
  6. LASIX [Concomitant]
     Route: 065
  7. ASPIRIN [Concomitant]
     Route: 065
  8. PANAMAX [Concomitant]

REACTIONS (4)
  - Melaena [Unknown]
  - Duodenitis [Unknown]
  - Haemorrhoids [Unknown]
  - Asthenia [Unknown]
